FAERS Safety Report 9602743 (Version 1)
Quarter: 2013Q4

REPORT INFORMATION
  Report Type: Spontaneous
  Country: CA (occurrence: CA)
  Receive Date: 20131007
  Receipt Date: 20131007
  Transmission Date: 20140711
  Serious: Yes (Hospitalization)
  Sender: FDA-Public Use
  Company Number: CA-009507513-1309CAN013613

PATIENT
  Sex: Male

DRUGS (1)
  1. TEMODAL [Suspect]
     Indication: RHABDOMYOSARCOMA
     Dosage: 340 MG, QD
     Route: 048
     Dates: start: 201307

REACTIONS (2)
  - Bedridden [Recovered/Resolved]
  - Off label use [Unknown]
